FAERS Safety Report 8355372-2 (Version None)
Quarter: 2012Q2

REPORT INFORMATION
  Report Type: 
  Country: None (occurrence: None)
  Receive Date: 20120511
  Receipt Date: 20120504
  Transmission Date: 20120825
  Serious: Yes (Hospitalization)
  Sender: FDA-Public Use
  Company Number: US-ROCHE-1047335

PATIENT
  Sex: Male

DRUGS (13)
  1. RANITIDINE [Concomitant]
     Dates: start: 20111012
  2. TRAZODONE HCL [Concomitant]
     Dates: start: 20111006
  3. NPH INSULIN [Concomitant]
     Dates: start: 20111213
  4. METFORMIN HCL [Concomitant]
     Dates: start: 20111220
  5. METOPROLOL TARTRATE [Concomitant]
     Dates: start: 20110918
  6. MIRALAX [Concomitant]
     Dates: start: 20110922
  7. MYCOPHENOLATE MOFETIL (CELLCEPT) [Suspect]
     Indication: RENAL TRANSPLANT
     Dates: start: 20110919
  8. MULTI-VITAMIN [Concomitant]
     Dates: start: 20070624
  9. INSULIN [Concomitant]
     Dates: start: 20070417
  10. BELATACEPT [Suspect]
     Indication: RENAL TRANSPLANT
     Route: 042
     Dates: start: 20070417
  11. PREDNISONE [Suspect]
     Indication: RENAL TRANSPLANT
     Dates: start: 20110922
  12. CIALIS [Concomitant]
     Dates: start: 20110413
  13. ASPIRIN [Concomitant]
     Dates: start: 20110707

REACTIONS (1)
  - PNEUMONIA ASPIRATION [None]
